FAERS Safety Report 9200466 (Version 1)
Quarter: 2013Q1

REPORT INFORMATION
  Report Type: Other
  Country: IT (occurrence: IT)
  Receive Date: 20130329
  Receipt Date: 20130329
  Transmission Date: 20140127
  Serious: Yes (Hospitalization)
  Sender: FDA-Public Use
  Company Number: IT-WATSON-2013-05391

PATIENT
  Age: 48 Year
  Sex: Female

DRUGS (2)
  1. CITALOPRAM [Suspect]
     Indication: INSOMNIA
     Dosage: OVERDOSE WITH 120MG TOTAL
     Route: 048
     Dates: start: 20121220, end: 20121220
  2. RIVOTRIL [Suspect]
     Indication: INSOMNIA
     Dosage: OVERDOSE WITH 10ML TOTAL
     Route: 048
     Dates: start: 20121220, end: 20121220

REACTIONS (5)
  - Sopor [Recovered/Resolved]
  - Bradykinesia [Recovered/Resolved]
  - Bradyphrenia [Recovered/Resolved]
  - Intentional drug misuse [Unknown]
  - Overdose [Unknown]
